FAERS Safety Report 6340180-4 (Version None)
Quarter: 2009Q3

REPORT INFORMATION
  Report Type: 
  Country: None (occurrence: None)
  Receive Date: 20090902
  Receipt Date: 20090818
  Transmission Date: 20100115
  Serious: Yes (Other)
  Sender: FDA-Public Use
  Company Number: 1-19405338

PATIENT
  Age: 38 Year
  Sex: Female
  Weight: 72.5755 kg

DRUGS (7)
  1. OVIDE [Suspect]
     Indication: LICE INFESTATION
     Dosage: 1 BOTTLE, ONCE, TOPICAL
     Route: 061
     Dates: start: 20090726, end: 20090726
  2. NORTRIPTYLINE HCL [Suspect]
     Dosage: 75 MG, ONCE DAILY, ORAL
     Route: 048
  3. ALBUTEROL NEBULIZER TREATMENT ONCE DAILY [Concomitant]
  4. MULTIVITAMIN ONCE DAILY [Concomitant]
  5. CLOMIPRAMINE 0.5 MG AS NEEDED [Concomitant]
  6. FLOVENT HFA (FLUTICASONE PROPIONATE HFA) [Concomitant]
  7. DUONEB (IPRATROPIUM BROMIDE AND ALBUTEROL SULFATE) AS NEEDED [Concomitant]

REACTIONS (11)
  - APPLICATION SITE PARAESTHESIA [None]
  - BURNING SENSATION [None]
  - DANDRUFF [None]
  - DRUG INTERACTION [None]
  - DRY SKIN [None]
  - DYSGEUSIA [None]
  - DYSPNOEA [None]
  - ERYTHEMA [None]
  - PRURITUS [None]
  - SKIN DISORDER [None]
  - STOMATITIS [None]
